FAERS Safety Report 18036756 (Version 1)
Quarter: 2020Q3

REPORT INFORMATION
  Report Type: Spontaneous
  Country: CA (occurrence: CA)
  Receive Date: 20200717
  Receipt Date: 20200717
  Transmission Date: 20201103
  Serious: Yes (Life-Threatening, Hospitalization)
  Sender: FDA-Public Use
  Company Number: NVSC2020CA200564

PATIENT
  Age: 4 Year
  Sex: Female
  Weight: 15 kg

DRUGS (6)
  1. TIGECYCLINE. [Suspect]
     Active Substance: TIGECYCLINE
     Indication: MASTOIDITIS
     Dosage: 20 MG, Q12H (SINGLE USE VIALS)
     Route: 042
  2. AMIKACIN SULFATE INJECTION USP [Suspect]
     Active Substance: AMIKACIN SULFATE
     Indication: EAR INFECTION
  3. AMIKACIN SULFATE INJECTION USP [Suspect]
     Active Substance: AMIKACIN SULFATE
     Indication: MASTOIDITIS
     Dosage: 300 MG, Q24H
     Route: 042
  4. TIGECYCLINE. [Suspect]
     Active Substance: TIGECYCLINE
     Indication: EAR INFECTION
  5. LINEZOLID. [Suspect]
     Active Substance: LINEZOLID
     Indication: MASTOIDITIS
     Dosage: 180 MG, TID
     Route: 048
  6. LINEZOLID. [Suspect]
     Active Substance: LINEZOLID
     Indication: EAR INFECTION

REACTIONS (5)
  - Thrombocytopenia [Recovered/Resolved]
  - Anaemia [Recovered/Resolved]
  - Vomiting [Recovered/Resolved]
  - Drug intolerance [Recovered/Resolved]
  - Neutropenia [Recovered/Resolved]
